FAERS Safety Report 10059224 (Version 1)
Quarter: 2014Q2

REPORT INFORMATION
  Report Type: Spontaneous
  Country: US (occurrence: US)
  Receive Date: 20140404
  Receipt Date: 20140404
  Transmission Date: 20141212
  Serious: No
  Sender: FDA-Public Use
  Company Number: US-GLAXOSMITHKLINE-A1022020A

PATIENT
  Age: 57 Year
  Sex: Female

DRUGS (6)
  1. ALLI [Suspect]
     Indication: WEIGHT DECREASED
     Dates: start: 201304, end: 20130430
  2. OXYCONTIN [Suspect]
  3. DOCUSATE SODIUM [Concomitant]
  4. SEROQUEL [Concomitant]
  5. LORAZEPAM [Concomitant]
  6. ZOLPIDEM [Concomitant]

REACTIONS (1)
  - Drug interaction [Unknown]
